FAERS Safety Report 15987499 (Version 3)
Quarter: 2019Q1

REPORT INFORMATION
  Report Type: Spontaneous
  Country: CA (occurrence: CA)
  Receive Date: 20190220
  Receipt Date: 20190322
  Transmission Date: 20190418
  Serious: Yes (Life-Threatening, Hospitalization, Other)
  Sender: FDA-Public Use
  Company Number: PHHY2019CA039694

PATIENT
  Sex: Male

DRUGS (5)
  1. DEFERIPRONE [Suspect]
     Active Substance: DEFERIPRONE
     Indication: MYELODYSPLASTIC SYNDROME
     Dosage: UNK
     Route: 065
  2. DEFERASIROX. [Suspect]
     Active Substance: DEFERASIROX
     Indication: IRON OVERLOAD
     Dosage: 1000 MG, QD
     Route: 048
     Dates: start: 201201, end: 201201
  3. LENALIDOMIDE [Suspect]
     Active Substance: LENALIDOMIDE
     Indication: MYELODYSPLASTIC SYNDROME
     Route: 065
  4. DEFEROXAMINE [Suspect]
     Active Substance: DEFEROXAMINE\DEFEROXAMINE MESYLATE
     Dosage: 1.8 MG, QD
     Route: 065
     Dates: start: 20180204
  5. DEFEROXAMINE [Suspect]
     Active Substance: DEFEROXAMINE\DEFEROXAMINE MESYLATE
     Indication: MYELODYSPLASTIC SYNDROME
     Dosage: UNK
     Route: 065
     Dates: start: 201110, end: 20120113

REACTIONS (9)
  - Serum ferritin abnormal [Unknown]
  - Deafness neurosensory [Not Recovered/Not Resolved]
  - Nephrolithiasis [Recovered/Resolved]
  - Blood creatinine increased [Unknown]
  - Arthralgia [Unknown]
  - Cardiac failure congestive [Unknown]
  - Gastrointestinal disorder [Unknown]
  - Sepsis [Unknown]
  - Costovertebral angle tenderness [Unknown]
